FAERS Safety Report 13288404 (Version 1)
Quarter: 2017Q1

REPORT INFORMATION
  Report Type: Spontaneous
  Country: US (occurrence: US)
  Receive Date: 20170302
  Receipt Date: 20170302
  Transmission Date: 20170428
  Serious: No
  Sender: FDA-Public Use
  Company Number: US-ELI_LILLY_AND_COMPANY-US201702011639

PATIENT
  Sex: Female

DRUGS (3)
  1. HUMALOG [Suspect]
     Active Substance: INSULIN LISPRO
     Indication: TYPE 2 DIABETES MELLITUS
     Dosage: 5 U, 15 MINUTES BEFORE MEALS
     Route: 065
     Dates: start: 2013
  2. HUMALOG [Suspect]
     Active Substance: INSULIN LISPRO
     Dosage: 5-6 U, 15 MINUTES BEFORE MEALS
     Route: 065
  3. HUMALOG [Suspect]
     Active Substance: INSULIN LISPRO
     Dosage: 5-6 U, 15 MINUTES BEFORE MEALS
     Route: 065

REACTIONS (1)
  - Blood glucose increased [Unknown]
